FAERS Safety Report 22265447 (Version 3)
Quarter: 2023Q2

REPORT INFORMATION
  Report Type: Spontaneous
  Country: IN (occurrence: IN)
  Receive Date: 20230428
  Receipt Date: 20230526
  Transmission Date: 20230722
  Serious: Yes (Hospitalization, Other)
  Sender: FDA-Public Use
  Company Number: IN-PFIZER INC-PV202300064926

PATIENT
  Age: 58 Year
  Sex: Female

DRUGS (7)
  1. PALBOCICLIB [Suspect]
     Active Substance: PALBOCICLIB
     Dosage: UNK
     Route: 048
     Dates: start: 20230205
  2. PALBOCICLIB [Suspect]
     Active Substance: PALBOCICLIB
     Dosage: 1 HOUR BEFORE MEALS (21 DAYS ON AND 7 DAYS OFF)
     Route: 048
  3. PALBOCICLIB [Suspect]
     Active Substance: PALBOCICLIB
     Dosage: 75 MG, 1X/DAY
     Route: 048
  4. FULVESTRANT [Concomitant]
     Active Substance: FULVESTRANT
     Dosage: UNK
     Dates: start: 20221124
  5. FULVESTRANT [Concomitant]
     Active Substance: FULVESTRANT
     Dosage: UNK
     Dates: start: 20230201
  6. ZOLEDRONIC ACID [Concomitant]
     Active Substance: ZOLEDRONIC ACID
     Dosage: UNK, MONTHLY
     Dates: end: 202301
  7. ZOLEDRONIC ACID [Concomitant]
     Active Substance: ZOLEDRONIC ACID
     Dosage: UNK, MONTHLY
     Dates: start: 20230201

REACTIONS (14)
  - Full blood count abnormal [Unknown]
  - Platelet count decreased [Unknown]
  - Haemoglobin decreased [Unknown]
  - Bell^s palsy [Recovering/Resolving]
  - Peripheral swelling [Unknown]
  - Blood glucose increased [Unknown]
  - Constipation [Recovering/Resolving]
  - Chest wall mass [Recovering/Resolving]
  - White blood cell count decreased [Unknown]
  - Aspartate aminotransferase increased [Recovering/Resolving]
  - Red blood cell count decreased [Unknown]
  - Pyrexia [Unknown]
  - Pruritus [Unknown]
  - Anxiety [Unknown]
